FAERS Safety Report 4667228-7 (Version None)
Quarter: 2005Q2

REPORT INFORMATION
  Report Type: 
  Country: None (occurrence: None)
  Receive Date: 20050520
  Receipt Date: 20050113
  Transmission Date: 20051028
  Serious: Yes (Disabling)
  Sender: FDA-Public Use
  Company Number: US-BRISTOL-MYERS SQUIBB COMPANY-12828661

PATIENT
  Sex: Female
  Weight: 76 kg

DRUGS (13)
  1. SINEMET [Suspect]
     Indication: PARKINSON'S DISEASE
     Route: 048
  2. CELEXA [Concomitant]
  3. FLEXERIL [Concomitant]
  4. FLOVENT [Concomitant]
  5. LEVSIN [Concomitant]
  6. NASONEX [Concomitant]
  7. PREMARIN [Concomitant]
  8. REQUIP [Concomitant]
  9. THYROID USP [Concomitant]
  10. VANCERIL [Concomitant]
  11. ALBUTEROL [Concomitant]
  12. PYRIDOXINE HCL [Concomitant]
  13. RANITIDINE [Concomitant]

REACTIONS (6)
  - ASTHENIA [None]
  - DIZZINESS [None]
  - DRUG INEFFECTIVE [None]
  - NERVOUSNESS [None]
  - PALPITATIONS [None]
  - PHARMACEUTICAL PRODUCT COMPLAINT [None]
